FAERS Safety Report 17322225 (Version 1)
Quarter: 2020Q1

REPORT INFORMATION
  Report Type: Report from Study
  Country: CO (occurrence: CO)
  Receive Date: 20200127
  Receipt Date: 20200127
  Transmission Date: 20200409
  Serious: Yes (Other)
  Sender: FDA-Public Use
  Company Number: CO-ROCHE-2446373

PATIENT
  Sex: Female

DRUGS (2)
  1. CYCLOSPORINE. [Concomitant]
     Active Substance: CYCLOSPORINE
     Route: 065
  2. CELLCEPT [Suspect]
     Active Substance: MYCOPHENOLATE MOFETIL\MYCOPHENOLATE MOFETIL HYDROCHLORIDE
     Indication: PRODUCT USED FOR UNKNOWN INDICATION
     Dosage: ONE IN THE MORNING AND ONE IN THE AFTERNOON, ONE AT 7 AND OTHER AT 10
     Route: 048

REACTIONS (5)
  - Pain in extremity [Unknown]
  - Nephrolithiasis [Unknown]
  - Cellulitis [Unknown]
  - Influenza [Unknown]
  - Malaise [Unknown]
